FAERS Safety Report 6238469-2 (Version None)
Quarter: 2009Q2

REPORT INFORMATION
  Report Type: 
  Country: None (occurrence: None)
  Receive Date: 20090622
  Receipt Date: 20090610
  Transmission Date: 20091009
  Serious: Yes (Disabling, Other)
  Sender: FDA-Public Use
  Company Number: US-PFIZER INC-2005103347

PATIENT
  Sex: Female

DRUGS (2)
  1. XANAX [Suspect]
     Indication: PANIC DISORDER WITH AGORAPHOBIA
     Dosage: 1 MG, UNK
     Route: 065
  2. DILANTIN [Suspect]
     Dosage: UNK
     Dates: start: 19960101

REACTIONS (15)
  - BLOOD CHOLESTEROL ABNORMAL [None]
  - BRAIN OPERATION [None]
  - CONVULSION [None]
  - DISABILITY [None]
  - DISORIENTATION [None]
  - DRUG HYPERSENSITIVITY [None]
  - DRUG LEVEL CHANGED [None]
  - GENERAL PHYSICAL HEALTH DETERIORATION [None]
  - HYSTERECTOMY [None]
  - ORAL SURGERY [None]
  - PANIC REACTION [None]
  - ROAD TRAFFIC ACCIDENT [None]
  - RUPTURED CEREBRAL ANEURYSM [None]
  - SKIN EXFOLIATION [None]
  - WITHDRAWAL SYNDROME [None]
